FAERS Safety Report 8943249 (Version 1)
Quarter: 2012Q4

REPORT INFORMATION
  Report Type: Spontaneous
  Country: US (occurrence: None)
  Receive Date: 20121121
  Receipt Date: 20121121
  Transmission Date: 20130627
  Serious: Yes (Other)
  Sender: FDA-Public Use
  Company Number: LMI-2012-00390

PATIENT
  Age: 54 Year
  Sex: Male
  Weight: 68.04 kg

DRUGS (11)
  1. DEFINITY [Suspect]
     Indication: ECHOCARDIOGRAM
     Dosage: Diluted as directed (1.5 ml), Intravenous
     Route: 042
     Dates: start: 20121026, end: 20121026
  2. LASIX (FUROSEMIDE) [Concomitant]
  3. ZAROXOLYN (METOLAZONE) [Concomitant]
  4. ZOCOR (SIMVASTATIN) [Concomitant]
  5. CARVEDILOL (CARVEDILOL) [Concomitant]
  6. LISINOPRIL (LISINOPRIL) [Concomitant]
  7. SPIRONOLACTONE (SPIRONOLACTONE) [Concomitant]
  8. PLAVIX (CLOPIDOGREL BISULFATE) [Concomitant]
  9. COUMADIN (WARFARIN SODIUM) [Concomitant]
  10. COENZYME Q10 (UBIDECARENONE) [Concomitant]
  11. INSULIN (INSULIN) [Concomitant]

REACTIONS (7)
  - Dizziness [None]
  - Eye movement disorder [None]
  - Unresponsive to stimuli [None]
  - Blood pressure decreased [None]
  - Heart rate decreased [None]
  - Blood glucose increased [None]
  - Fatigue [None]
